FAERS Safety Report 5302355-2 (Version None)
Quarter: 2007Q1

REPORT INFORMATION
  Report Type: 
  Country: None (occurrence: None)
  Receive Date: 20070201
  Receipt Date: 20061212
  Transmission Date: 20070707
  Serious: No
  Sender: FDA-Public Use
  Company Number: 2006PV026750

PATIENT
  Age: 64 Year
  Sex: Female
  Weight: 105.6881 kg

DRUGS (5)
  1. BYETTA [Suspect]
     Dosage: 5 MCG;BID;SC
     Route: 058
     Dates: start: 20061129
  2. METFORMIN HCL [Concomitant]
  3. GLYBURIDE [Concomitant]
  4. AVANDIA [Concomitant]
  5. LASIX [Concomitant]

REACTIONS (1)
  - WEIGHT DECREASED [None]
